FAERS Safety Report 5899028-4 (Version None)
Quarter: 2008Q3

REPORT INFORMATION
  Report Type: 
  Country: None (occurrence: None)
  Receive Date: 20080925
  Receipt Date: 20080916
  Transmission Date: 20090109
  Serious: Yes (Other)
  Sender: FDA-Public Use
  Company Number: GB-PFIZER INC-2008078614

PATIENT
  Age: 75 Year
  Sex: Male

DRUGS (4)
  1. ATORVASTATIN CALCIUM [Suspect]
     Indication: HYPERCHOLESTEROLAEMIA
     Route: 048
     Dates: start: 20080205
  2. BETNOVATE [Concomitant]
     Indication: PSORIASIS
  3. DIPYRIDAMOLE [Concomitant]
     Indication: DRUG INTOLERANCE
  4. DOVONEX [Concomitant]
     Indication: PSORIASIS

REACTIONS (3)
  - ERYTHRODERMIC PSORIASIS [None]
  - MYALGIA [None]
  - OEDEMA PERIPHERAL [None]
